FAERS Safety Report 5977048-9 (Version None)
Quarter: 2008Q4

REPORT INFORMATION
  Report Type: 
  Country: None (occurrence: None)
  Receive Date: 20081202
  Receipt Date: 20081202
  Transmission Date: 20090506
  Serious: No
  Sender: FDA-Public Use
  Company Number: None

PATIENT

DRUGS (3)
  1. REGLAN [Suspect]
     Indication: HEADACHE
     Dosage: 10 MG PO
     Route: 048
     Dates: start: 20080930
  2. BENADRYL [Concomitant]
  3. MORPHINE IM [Concomitant]

REACTIONS (5)
  - ABDOMINAL PAIN [None]
  - DYSPNOEA [None]
  - DYSTONIA [None]
  - MUSCLE TWITCHING [None]
  - TREMOR [None]
